FAERS Safety Report 4849290-1 (Version None)
Quarter: 2005Q4

REPORT INFORMATION
  Report Type: 
  Country: None (occurrence: None)
  Receive Date: 20051207
  Receipt Date: 20051201
  Transmission Date: 20060501
  Serious: Yes (Other)
  Sender: FDA-Public Use
  Company Number: 2004116313

PATIENT
  Age: 70 Year
  Sex: Female

DRUGS (8)
  1. BEXTRA [Suspect]
     Indication: EPICONDYLITIS
     Dosage: 200 MG (20 MG, 1 IN 1 D), ORAL
     Route: 048
     Dates: start: 20040101, end: 20040819
  2. BEXTRA [Suspect]
     Indication: PAIN
     Dosage: 200 MG (20 MG, 1 IN 1 D), ORAL
     Route: 048
     Dates: start: 20040101, end: 20040819
  3. LIPITOR [Suspect]
     Indication: ILL-DEFINED DISORDER
     Dosage: 10 MG,
  4. ADVIL [Suspect]
     Indication: ILL-DEFINED DISORDER
  5. VITAMIN B6 (VITAMIN B6) [Concomitant]
  6. VITAMIN B COMPLEX CAP [Concomitant]
  7. MAGNESIUM (MAGNESIUM) [Concomitant]
  8. CENTRUM SILVER (ABSCORBIC ACID, CALCIUM, MINERALS  NOS, RETINOL, TOCOP [Concomitant]

REACTIONS (11)
  - ANXIETY [None]
  - CHEST PAIN [None]
  - COLONOSCOPY [None]
  - DIZZINESS [None]
  - FEELING ABNORMAL [None]
  - GASTROINTESTINAL MUCOSAL DISORDER [None]
  - HEART RATE INCREASED [None]
  - NEUROPATHY [None]
  - OPTIC NERVE DISORDER [None]
  - PAIN [None]
  - PALPITATIONS [None]
